FAERS Safety Report 5784364-2 (Version None)
Quarter: 2008Q2

REPORT INFORMATION
  Report Type: 
  Country: None (occurrence: None)
  Receive Date: 20080605
  Receipt Date: 20080408
  Transmission Date: 20081010
  Serious: No
  Sender: FDA-Public Use
  Company Number: A0719130A

PATIENT

DRUGS (3)
  1. ALLI [Suspect]
  2. COUGH MEDICINE [Concomitant]
  3. CODEINE [Concomitant]

REACTIONS (4)
  - CONSTIPATION [None]
  - DRUG INEFFECTIVE [None]
  - NASOPHARYNGITIS [None]
  - RECTAL DISCHARGE [None]
